FAERS Safety Report 17233588 (Version 2)
Quarter: 2020Q1

REPORT INFORMATION
  Report Type: Spontaneous
  Country: PT (occurrence: PT)
  Receive Date: 20200105
  Receipt Date: 20200217
  Transmission Date: 20200409
  Serious: Yes (Hospitalization)
  Sender: FDA-Public Use
  Company Number: PT-ROCHE-2510032

PATIENT
  Age: 59 Year
  Sex: Female

DRUGS (1)
  1. ROACTEMRA [Suspect]
     Active Substance: TOCILIZUMAB
     Indication: RHEUMATOID ARTHRITIS
     Route: 065
     Dates: start: 20190314, end: 20190716

REACTIONS (5)
  - Acidosis [Unknown]
  - Hydronephrosis [Unknown]
  - Necrotising fasciitis staphylococcal [Unknown]
  - Nephrolithiasis [Unknown]
  - Urosepsis [Unknown]

NARRATIVE: CASE EVENT DATE: 20190314
